FAERS Safety Report 5144787-1 (Version None)
Quarter: 2006Q4

REPORT INFORMATION
  Report Type: 
  Country: None (occurrence: None)
  Receive Date: 20061103
  Receipt Date: 20061103
  Transmission Date: 20070319
  Serious: Yes (Hospitalization)
  Sender: FDA-Public Use
  Company Number: None

PATIENT
  Age: 61 Year
  Sex: Female
  Weight: 70.0354 kg

DRUGS (2)
  1. GEMCITABINE [Suspect]
     Indication: BILE DUCT CANCER
     Dosage: 1 GM/M2 QW X 3
     Dates: start: 20051230, end: 20061020
  2. GW572016 (LAPATINIB) [Suspect]
     Indication: BILE DUCT CANCER
     Dosage: 1500MG Q DAY
     Dates: start: 20051230, end: 20061101

REACTIONS (3)
  - DISEASE PROGRESSION [None]
  - JAUNDICE [None]
  - SEPSIS [None]
